FAERS Safety Report 8511919-4 (Version None)
Quarter: 2012Q3

REPORT INFORMATION
  Report Type: 
  Country: None (occurrence: None)
  Receive Date: 20120716
  Receipt Date: 20120712
  Transmission Date: 20120928
  Serious: Yes (Other)
  Sender: FDA-Public Use
  Company Number: PHHY2012JP057757

PATIENT
  Age: 77 Year
  Sex: Male

DRUGS (1)
  1. ZOMETA [Suspect]
     Indication: MULTIPLE MYELOMA
     Route: 041

REACTIONS (6)
  - GINGIVAL ULCERATION [None]
  - EXPOSED BONE IN JAW [None]
  - PRIMARY SEQUESTRUM [None]
  - GINGIVAL DISORDER [None]
  - OSTEONECROSIS OF JAW [None]
  - PAIN IN JAW [None]
